FAERS Safety Report 5029746-1 (Version None)
Quarter: 2006Q2

REPORT INFORMATION
  Report Type: 
  Country: None (occurrence: None)
  Receive Date: 20060614
  Receipt Date: 20060530
  Transmission Date: 20061013
  Serious: Yes (Hospitalization)
  Sender: FDA-Public Use
  Company Number: US20060300416

PATIENT
  Age: 38 Year
  Sex: Female
  Weight: 83 kg

DRUGS (5)
  1. ZYPREXA [Suspect]
     Dosage: 10 MG ; 15 MG ; 25 MG ; 20 MG
     Dates: start: 20010901, end: 20011001
  2. ZYPREXA [Suspect]
     Dosage: 10 MG ; 15 MG ; 25 MG ; 20 MG
     Dates: start: 20011001, end: 20021001
  3. ZYPREXA [Suspect]
     Dosage: 10 MG ; 15 MG ; 25 MG ; 20 MG
     Dates: start: 20021001, end: 20031201
  4. ZYPREXA [Suspect]
     Dosage: 10 MG ; 15 MG ; 25 MG ; 20 MG
     Dates: start: 20031201, end: 20040801
  5. ABILIFY [Concomitant]

REACTIONS (7)
  - DIABETES MELLITUS NON-INSULIN-DEPENDENT [None]
  - HAEMATEMESIS [None]
  - HYPERGLYCAEMIA [None]
  - HYPERTRIGLYCERIDAEMIA [None]
  - OBESITY [None]
  - PRESCRIBED OVERDOSE [None]
  - WEIGHT INCREASED [None]
